FAERS Safety Report 7170651-2 (Version None)
Quarter: 2010Q4

REPORT INFORMATION
  Report Type: 
  Country: None (occurrence: None)
  Receive Date: 20101217
  Receipt Date: 20101214
  Transmission Date: 20110411
  Serious: Yes (Death)
  Sender: FDA-Public Use
  Company Number: B0684355A

PATIENT
  Age: 49 Year
  Sex: Female

DRUGS (5)
  1. TYVERB [Suspect]
     Indication: BREAST CANCER METASTATIC
     Route: 048
     Dates: start: 20100701, end: 20101001
  2. CAPECITABINE [Suspect]
     Indication: LYMPHADENOPATHY
     Dates: start: 20100601, end: 20101001
  3. HERCEPTIN [Concomitant]
  4. GEMCITABINE [Concomitant]
  5. CARBOPLATIN [Concomitant]

REACTIONS (7)
  - DYSARTHRIA [None]
  - HEADACHE [None]
  - HYPOAESTHESIA [None]
  - MENINGEAL DISORDER [None]
  - NEUROTOXICITY [None]
  - PAIN [None]
  - SENSORY LOSS [None]
